FAERS Safety Report 4928601-2 (Version None)
Quarter: 2006Q1

REPORT INFORMATION
  Report Type: 
  Country: None (occurrence: None)
  Receive Date: 20060301
  Receipt Date: 20060216
  Transmission Date: 20060701
  Serious: Yes (Hospitalization)
  Sender: FDA-Public Use
  Company Number: 2006CG00342

PATIENT
  Age: 69 Year
  Sex: Female

DRUGS (8)
  1. OMEPRAZOLE [Suspect]
     Route: 048
  2. MOTILIUM [Suspect]
     Route: 048
     Dates: end: 20051201
  3. PROZAC [Suspect]
     Indication: DYSTHYMIC DISORDER
     Route: 048
     Dates: end: 20051122
  4. PROZAC [Suspect]
     Route: 048
     Dates: start: 20051122, end: 20051128
  5. PROZAC [Suspect]
     Route: 048
     Dates: start: 20051128, end: 20051130
  6. TARDYFERON [Suspect]
     Route: 048
  7. DIFFU K [Suspect]
     Route: 048
     Dates: end: 20051205
  8. SKENAN LP [Suspect]
     Indication: ARTHRALGIA
     Route: 048
     Dates: end: 20051122

REACTIONS (1)
  - WEIGHT DECREASED [None]
